FAERS Safety Report 5590647-1 (Version None)
Quarter: 2008Q1

REPORT INFORMATION
  Report Type: 
  Country: None (occurrence: None)
  Receive Date: 20080114
  Receipt Date: 20080110
  Transmission Date: 20080703
  Serious: Yes (Hospitalization)
  Sender: FDA-Public Use
  Company Number: PT-MERCK-0801PRT00003

PATIENT
  Age: 51 Year

DRUGS (2)
  1. INVANZ [Suspect]
     Indication: PROPHYLAXIS
     Route: 042
     Dates: start: 20070413, end: 20070413
  2. BETAHISTINE HYDROCHLORIDE [Concomitant]
     Indication: MENIERE'S DISEASE
     Route: 048

REACTIONS (3)
  - PRURITUS [None]
  - RASH MACULO-PAPULAR [None]
  - TOXIC SKIN ERUPTION [None]
